FAERS Safety Report 24603179 (Version 1)
Quarter: 2024Q4

REPORT INFORMATION
  Report Type: Spontaneous
  Country: US (occurrence: None)
  Receive Date: 20241108
  Receipt Date: 20241108
  Transmission Date: 20250114
  Serious: Yes (Other)
  Sender: Public
  Company Number: None

PATIENT
  Age: 4 Year
  Sex: Female
  Weight: 22.6 kg

DRUGS (1)
  1. ZOLGENSMA [Suspect]
     Active Substance: ONASEMNOGENE ABEPARVOVEC-XIOI
     Indication: Spinal muscular atrophy
     Dosage: OTHER FREQUENCY : ONCE;?
     Route: 042
     Dates: start: 20210203, end: 20210203

REACTIONS (4)
  - Muscular weakness [None]
  - Drug ineffective [None]
  - Spinal muscular atrophy [None]
  - Disease progression [None]

NARRATIVE: CASE EVENT DATE: 20210203
